FAERS Safety Report 18058121 (Version 2)
Quarter: 2020Q3

REPORT INFORMATION
  Report Type: Spontaneous
  Country: US (occurrence: US)
  Receive Date: 20200723
  Receipt Date: 20200813
  Transmission Date: 20201103
  Serious: No
  Sender: FDA-Public Use
  Company Number: US-GLAXOSMITHKLINE-US2020133232

PATIENT
  Age: 62 Year
  Sex: Female

DRUGS (1)
  1. NUCALA [Suspect]
     Active Substance: MEPOLIZUMAB
     Indication: ASTHMA
     Dosage: UNK

REACTIONS (4)
  - Product dose omission issue [Recovered/Resolved]
  - Wrong technique in device usage process [Recovered/Resolved]
  - Accidental exposure to product [Recovered/Resolved]
  - Exposure via skin contact [Recovered/Resolved]

NARRATIVE: CASE EVENT DATE: 20200714
